FAERS Safety Report 5595294-3 (Version None)
Quarter: 2008Q1

REPORT INFORMATION
  Report Type: 
  Country: None (occurrence: None)
  Receive Date: 20080117
  Receipt Date: 20080110
  Transmission Date: 20080703
  Serious: Yes (Disabling)
  Sender: FDA-Public Use
  Company Number: US-MERCK-0704USA05979

PATIENT
  Age: 42 Year
  Sex: Male

DRUGS (7)
  1. FOSAMAX [Suspect]
     Indication: OSTEOPOROSIS
     Route: 048
     Dates: start: 20000101, end: 20050101
  2. FOSAMAX PLUS D [Suspect]
     Route: 048
     Dates: end: 20050607
  3. PREDNISONE [Suspect]
     Route: 065
  4. NAPROXEN [Concomitant]
     Indication: RHEUMATOID ARTHRITIS
     Route: 065
     Dates: start: 20011101
  5. IBUPROFEN [Concomitant]
     Indication: RHEUMATOID ARTHRITIS
     Route: 065
     Dates: start: 20011101
  6. METHOTREXATE [Concomitant]
     Indication: RHEUMATOID ARTHRITIS
     Route: 065
     Dates: start: 20001201
  7. OXYCODONE [Concomitant]
     Indication: RHEUMATOID ARTHRITIS
     Route: 065
     Dates: start: 20010901

REACTIONS (6)
  - DENTAL CARIES [None]
  - GINGIVAL BLEEDING [None]
  - JOINT INJURY [None]
  - OSTEONECROSIS [None]
  - RHEUMATOID ARTHRITIS [None]
  - VITAMIN D DEFICIENCY [None]
